FAERS Safety Report 5029231-7 (Version None)
Quarter: 2006Q2

REPORT INFORMATION
  Report Type: 
  Country: None (occurrence: None)
  Receive Date: 20060613
  Receipt Date: 20060531
  Transmission Date: 20061013
  Serious: Yes (Other)
  Sender: FDA-Public Use
  Company Number: 2006070633

PATIENT
  Age: 70 Year

DRUGS (6)
  1. ZYVOX [Suspect]
     Indication: STAPHYLOCOCCAL INFECTION
     Dosage: 600 MG (1 IN 1 TOTAL) ORAL
     Route: 048
     Dates: start: 20060530, end: 20060530
  2. UNASYN [Concomitant]
  3. RABEPRAZOLE SODIUM [Concomitant]
  4. AMLODIPINE [Concomitant]
  5. LOXONIN (LOXOPROFEN SODIUM) [Concomitant]
  6. LACTATED RINGER'S INJECTION (CALCIUM CHLORIDE DIHYDRATE, POTASSIUM CHL [Concomitant]

REACTIONS (4)
  - CHILLS [None]
  - PYREXIA [None]
  - TREMOR [None]
  - VOMITING [None]
